FAERS Safety Report 16682053 (Version 2)
Quarter: 2019Q3

REPORT INFORMATION
  Report Type: Spontaneous
  Country: JP (occurrence: JP)
  Receive Date: 20190808
  Receipt Date: 20190812
  Transmission Date: 20191004
  Serious: Yes (Other)
  Sender: FDA-Public Use
  Company Number: JP-PFIZER INC-2019335789

PATIENT
  Sex: Female

DRUGS (2)
  1. LIPITOR [Suspect]
     Active Substance: ATORVASTATIN CALCIUM
     Dosage: 15 MG/DAY, UNKNOWN FREQ.
     Route: 048
     Dates: start: 201903
  2. LIPITOR [Suspect]
     Active Substance: ATORVASTATIN CALCIUM
     Dosage: 10 MG/DAY, UNKNOWN FREQ.
     Route: 048

REACTIONS (3)
  - Glossitis [Not Recovered/Not Resolved]
  - Cheilitis [Not Recovered/Not Resolved]
  - Herpes virus infection [Not Recovered/Not Resolved]
